FAERS Safety Report 5644035-X (Version None)
Quarter: 2008Q1

REPORT INFORMATION
  Report Type: 
  Country: None (occurrence: None)
  Receive Date: 20080131
  Receipt Date: 20071120
  Transmission Date: 20080703
  Serious: No
  Sender: FDA-Public Use
  Company Number: 163-21880-07111245

PATIENT
  Age: 63 Year
  Sex: Male

DRUGS (8)
  1. REVLIMID [Suspect]
     Indication: MULTIPLE MYELOMA
     Dosage: 10 MG, QD, ORAL
     Route: 048
     Dates: start: 20071024
  2. EXJADE [Concomitant]
  3. INDEROL (PROPRANOL HYDROCHLORIDE) [Concomitant]
  4. ATACAND [Concomitant]
  5. GLYBURIDE [Concomitant]
  6. METFORMIN HCL [Concomitant]
  7. PROCRIT [Concomitant]
  8. AVANDIA [Concomitant]

REACTIONS (6)
  - ACNE [None]
  - DIARRHOEA [None]
  - DRY SKIN [None]
  - FATIGUE [None]
  - HAEMATOCRIT DECREASED [None]
  - NAUSEA [None]
